FAERS Safety Report 8813544 (Version 1)
Quarter: 2012Q4

REPORT INFORMATION
  Report Type: 
  Country: US (occurrence: US)
  Receive Date: 20120927
  Receipt Date: 20120927
  Transmission Date: 20130627
  Serious: No
  Sender: FDA-Public Use
  Company Number: US-AMGEN-USASP2012050943

PATIENT
  Age: 76 Year
  Sex: Female

DRUGS (4)
  1. PROLIA [Suspect]
     Indication: OSTEOPOROSIS POSTMENOPAUSAL
     Dosage: 6 mg, q6mo
     Dates: start: 201201
  2. PREDNISONE [Concomitant]
     Dosage: UNK
  3. BENADRYL                           /00000402/ [Concomitant]
     Dosage: UNK
  4. PEPCID                             /00706001/ [Concomitant]
     Dosage: UNK

REACTIONS (5)
  - Rash generalised [Recovering/Resolving]
  - Lip swelling [Unknown]
  - Feeling abnormal [Unknown]
  - Burning sensation [Unknown]
  - Urticaria [Recovering/Resolving]
